FAERS Safety Report 18520621 (Version 2)
Quarter: 2020Q4

REPORT INFORMATION
  Report Type: Spontaneous
  Country: FR (occurrence: FR)
  Receive Date: 20201119
  Receipt Date: 20201125
  Transmission Date: 20210114
  Serious: Yes (Hospitalization)
  Sender: FDA-Public Use
  Company Number: FR-SUN PHARMACEUTICAL INDUSTRIES LTD-2020RR-268217

PATIENT
  Age: 75 Year
  Sex: Female
  Weight: 70 kg

DRUGS (13)
  1. VALACICLOVIR [Suspect]
     Active Substance: VALACYCLOVIR HYDROCHLORIDE
     Dosage: 1000 MILLIGRAM, DAILY
     Route: 048
     Dates: start: 20200916
  2. TRUXIMA [Suspect]
     Active Substance: RITUXIMAB-ABBS
     Indication: CHRONIC LYMPHOCYTIC LEUKAEMIA
     Dosage: 630 MILLIGRAM, CYCLICAL
     Route: 042
     Dates: start: 20200907, end: 20200907
  3. BENDAMUSTINE (CHLORHYDRATE DE) MONOHYDRATE [Suspect]
     Active Substance: BENDAMUSTINE HYDROCHLORIDE
     Indication: CHRONIC LYMPHOCYTIC LEUKAEMIA
  4. CANDESARTAN CILEXETIL. [Concomitant]
     Active Substance: CANDESARTAN CILEXETIL
     Dosage: 8 MILLIGRAM, DAILY
     Route: 048
  5. CRESTOR [Concomitant]
     Active Substance: ROSUVASTATIN CALCIUM
     Indication: DYSLIPIDAEMIA
     Dosage: 10 MILLIGRAM, DAILY
     Route: 048
  6. VALACICLOVIR [Suspect]
     Active Substance: VALACYCLOVIR HYDROCHLORIDE
     Indication: INFECTION PROPHYLAXIS
     Dosage: 1000 MILLIGRAM, DAILY
     Route: 048
     Dates: start: 20200811, end: 20200911
  7. BACTRIM [Suspect]
     Active Substance: SULFAMETHOXAZOLE\TRIMETHOPRIM
     Indication: INFECTION PROPHYLAXIS
     Dosage: 3 DOSAGE FORM, WEEKLY
     Route: 048
     Dates: start: 20200811, end: 20200911
  8. EPORATIO [Concomitant]
     Active Substance: ERYTHROPOIETIN
     Indication: ANAEMIA
  9. LONQUEX 6 MG, SOLUTION INJECTABLE [Concomitant]
     Indication: CYCLIC NEUTROPENIA
     Dosage: 1 DOSAGE FORM, CYCLICAL
     Route: 058
     Dates: start: 20200811
  10. BENDAMUSTINE (CHLORHYDRATE DE) MONOHYDRATE [Suspect]
     Active Substance: BENDAMUSTINE HYDROCHLORIDE
     Indication: CHRONIC LYMPHOCYTIC LEUKAEMIA
     Dosage: 151 MILLIGRAM, CYCLICAL
     Route: 042
     Dates: start: 20200810, end: 20200908
  11. TRUXIMA [Suspect]
     Active Substance: RITUXIMAB-ABBS
     Indication: CHRONIC LYMPHOCYTIC LEUKAEMIA
  12. CANDESARTAN CILEXETIL. [Concomitant]
     Active Substance: CANDESARTAN CILEXETIL
     Indication: HYPERTENSION
     Dosage: 8 MILLIGRAM
     Route: 048
  13. EPORATIO [Concomitant]
     Active Substance: ERYTHROPOIETIN
     Indication: ANAEMIA
     Dosage: 3000 INTERNATIONAL UNIT, WEEKLY
     Route: 058
     Dates: start: 20200811

REACTIONS (1)
  - Erythema [Recovered/Resolved]

NARRATIVE: CASE EVENT DATE: 20200909
